FAERS Safety Report 5624162-3 (Version None)
Quarter: 2008Q1

REPORT INFORMATION
  Report Type: 
  Country: None (occurrence: None)
  Receive Date: 20080213
  Receipt Date: 20080204
  Transmission Date: 20080703
  Serious: Yes (Hospitalization)
  Sender: FDA-Public Use
  Company Number: PHHO2007US20212

PATIENT
  Age: 70 Year
  Sex: Male
  Weight: 93 kg

DRUGS (14)
  1. AEB071 [Suspect]
     Indication: RENAL TRANSPLANT
     Dosage: 300 MG, BID
     Route: 048
     Dates: start: 20071129, end: 20071205
  2. PREDNISONE TAB [Concomitant]
     Indication: RENAL TRANSPLANT
     Dosage: 20 MG / DAILY
     Route: 048
     Dates: start: 20071204
  3. NORVASC [Concomitant]
     Indication: HYPERTENSION
     Dosage: 10 MG
  4. DILTIAZEM [Concomitant]
     Indication: HYPERTENSION
     Dosage: 180 MG
  5. ACYCLOVIR [Concomitant]
  6. ASPIRIN [Concomitant]
  7. DULCOLAX [Concomitant]
  8. WELLBUTRIN [Concomitant]
  9. CLONIDINE [Concomitant]
  10. DOCUSATE [Concomitant]
  11. OMEPRAZOLE [Concomitant]
  12. VICODIN [Concomitant]
  13. LISINOPRIL [Concomitant]
  14. MYFORTIC [Suspect]
     Indication: RENAL TRANSPLANT
     Dosage: 720 MG, BID
     Route: 048
     Dates: start: 20071129, end: 20071205

REACTIONS (7)
  - ASTHENIA [None]
  - CONSTIPATION [None]
  - DIZZINESS [None]
  - FATIGUE [None]
  - FEELING ABNORMAL [None]
  - INCISION SITE PAIN [None]
  - INSOMNIA [None]
